FAERS Safety Report 8600291 (Version 2)
Quarter: 2012Q4

REPORT INFORMATION
  Report Type: 
  Country: CA (occurrence: CA)
  Receive Date: 20120606
  Receipt Date: 20120910
  Transmission Date: 20130627
  Serious: Yes (Hospitalization)
  Sender: FDA-Public Use
  Company Number: CA-BIOGENIDEC-2012BI019680

PATIENT
  Age: 36 Year
  Sex: Male

DRUGS (1)
  1. AVONEX [Suspect]
     Indication: MULTIPLE SCLEROSIS
     Route: 030
     Dates: start: 20120127, end: 20120601

REACTIONS (9)
  - Aspartate aminotransferase increased [Unknown]
  - Alanine aminotransferase increased [Unknown]
  - Pancreatitis [Recovered/Resolved]
  - Contusion [Unknown]
  - Skin induration [Unknown]
  - Migraine [Unknown]
  - Genital contusion [Unknown]
  - Testicular disorder [Unknown]
  - Vasectomy [Unknown]
